FAERS Safety Report 18221330 (Version 1)
Quarter: 2020Q3

REPORT INFORMATION
  Report Type: Spontaneous
  Country: US (occurrence: US)
  Receive Date: 20200901
  Receipt Date: 20200901
  Transmission Date: 20201103
  Serious: Yes (Other)
  Sender: FDA-Public Use
  Company Number: None

PATIENT
  Age: 50 Year
  Sex: Female
  Weight: 109.35 kg

DRUGS (9)
  1. SYNTHROID [Suspect]
     Active Substance: LEVOTHYROXINE SODIUM
     Indication: HYPOTHYROIDISM
     Dosage: ?          QUANTITY:1 CAPSULE(S);?
     Route: 048
     Dates: start: 20200805, end: 20200826
  2. LISINOPRIL/HCTZ [Concomitant]
     Active Substance: HYDROCHLOROTHIAZIDE\LISINOPRIL
  3. ZYRTEC [Concomitant]
     Active Substance: CETIRIZINE HYDROCHLORIDE
  4. NORETHINDRONE. [Concomitant]
     Active Substance: NORETHINDRONE
  5. VITAMIN D [Concomitant]
     Active Substance: VITAMIN D NOS
  6. PHENTERMINE. [Concomitant]
     Active Substance: PHENTERMINE
  7. LEVOTHYROXIN [Suspect]
     Active Substance: LEVOTHYROXINE
  8. OZEMPIC [Concomitant]
     Active Substance: SEMAGLUTIDE
  9. ALLEGRA [Concomitant]
     Active Substance: FEXOFENADINE HYDROCHLORIDE

REACTIONS (4)
  - Product quality issue [None]
  - Rash pruritic [None]
  - Manufacturing issue [None]
  - Product formulation issue [None]

NARRATIVE: CASE EVENT DATE: 20200808
